FAERS Safety Report 10196673 (Version 2)
Quarter: 2014Q2

REPORT INFORMATION
  Report Type: Spontaneous
  Country: US (occurrence: US)
  Receive Date: 20140527
  Receipt Date: 20140609
  Transmission Date: 20141212
  Serious: Yes (Other)
  Sender: FDA-Public Use
  Company Number: US-PFIZER INC-2014141659

PATIENT
  Age: 70 Year
  Sex: Female
  Weight: 104.31 kg

DRUGS (4)
  1. REVATIO [Suspect]
     Indication: PULMONARY HYPERTENSION
     Dosage: 20 MG, 3X/DAY
     Route: 048
     Dates: start: 20140519, end: 2014
  2. REVATIO [Suspect]
     Dosage: 40 MG (TAKING TWO TABLETS OF 20 MG TOGETHER), 3X/DAY
     Route: 048
     Dates: start: 2014
  3. BISOPROLOL [Concomitant]
     Indication: HYPERTENSION
     Dosage: UNK
  4. PIOGLITAZONE [Concomitant]
     Indication: DIABETES MELLITUS
     Dosage: UNK

REACTIONS (2)
  - Dyspnoea [Recovering/Resolving]
  - Lung disorder [Recovering/Resolving]
